FAERS Safety Report 20770645 (Version 1)
Quarter: 2022Q2

REPORT INFORMATION
  Report Type: Spontaneous
  Country: CH (occurrence: CH)
  Receive Date: 20220429
  Receipt Date: 20220429
  Transmission Date: 20220721
  Serious: Yes (Other)
  Sender: FDA-Public Use
  Company Number: CH-MYLANLABS-2022M1032015

PATIENT
  Age: 17 Year
  Sex: Female

DRUGS (3)
  1. IMATINIB [Suspect]
     Active Substance: IMATINIB
     Indication: Desmoid tumour
     Dosage: UNK
     Route: 048
     Dates: start: 2018
  2. PAZOPANIB [Suspect]
     Active Substance: PAZOPANIB
     Indication: Desmoid tumour
     Dosage: 800 MILLIGRAM, QD
     Route: 048
     Dates: start: 20180812
  3. PAZOPANIB [Suspect]
     Active Substance: PAZOPANIB
     Dosage: 600 MILLIGRAM, QD
     Route: 048
     Dates: end: 202003

REACTIONS (2)
  - Lymphadenopathy [Recovering/Resolving]
  - Drug ineffective [Unknown]

NARRATIVE: CASE EVENT DATE: 20180101
